FAERS Safety Report 8873908 (Version 2)
Quarter: 2012Q4

REPORT INFORMATION
  Report Type: 
  Country: JP (occurrence: JP)
  Receive Date: 20121030
  Receipt Date: 20121105
  Transmission Date: 20130627
  Serious: Yes (Other)
  Sender: FDA-Public Use
  Company Number: PHHY2012JP097066

PATIENT
  Sex: Male

DRUGS (1)
  1. TEGRETOL [Suspect]
     Indication: EPILEPSY
     Route: 048

REACTIONS (6)
  - Visual field defect [Unknown]
  - Dry eye [Unknown]
  - Dry throat [Unknown]
  - Blepharospasm [Unknown]
  - Vision blurred [Unknown]
  - Photophobia [Unknown]
